FAERS Safety Report 4640709-8 (Version None)
Quarter: 2005Q2

REPORT INFORMATION
  Report Type: 
  Country: None (occurrence: None)
  Receive Date: 20050325
  Receipt Date: 20040223
  Transmission Date: 20051028
  Serious: Yes (Hospitalization, Other)
  Sender: FDA-Public Use
  Company Number: 2004-00737

PATIENT
  Age: 48 Year
  Sex: Female
  Weight: 46.3 kg

DRUGS (2)
  1. FERRLECIT [Suspect]
     Dosage: 250 MG OVER 2 HRS, 250CCS, INTRAVENOUS
     Route: 042
     Dates: start: 20031026, end: 20031026
  2. EPOGEN [Concomitant]

REACTIONS (5)
  - BLOOD PRESSURE DECREASED [None]
  - BRADYCARDIA [None]
  - LOSS OF CONSCIOUSNESS [None]
  - OEDEMA PERIPHERAL [None]
  - SYNCOPE [None]
